FAERS Safety Report 6557396-4 (Version None)
Quarter: 2010Q1

REPORT INFORMATION
  Report Type: 
  Country: None (occurrence: None)
  Receive Date: 20100129
  Receipt Date: 20100122
  Transmission Date: 20100710
  Serious: Yes (Other)
  Sender: FDA-Public Use
  Company Number: PHHY2010JP02771

PATIENT
  Age: 59 Year
  Sex: Female

DRUGS (7)
  1. SANDOSTATIN LAR [Suspect]
     Indication: ACROMEGALY
     Dosage: 20 MG / MONTH
     Dates: start: 20040601
  2. SANDOSTATIN LAR [Suspect]
     Dosage: 20 MG / MONTH
     Dates: start: 20070901
  3. SANDOSTATIN LAR [Suspect]
     Dosage: 20 MG / MONTH
     Dates: start: 20080101
  4. SANDOSTATIN LAR [Suspect]
     Dosage: 20 MG / MONTH
     Dates: start: 20090801
  5. PEGVISOMANT [Suspect]
     Indication: ACROMEGALY
     Dosage: 35 MG/WEEK
     Dates: start: 20070901
  6. PEGVISOMANT [Suspect]
     Dosage: UNK
     Dates: start: 20080101
  7. PEGVISOMANT [Suspect]
     Dosage: 20 MG / WEEK
     Dates: start: 20090801

REACTIONS (10)
  - ACROMEGALY [None]
  - ARTHRALGIA [None]
  - BLOOD GROWTH HORMONE INCREASED [None]
  - DRUG EFFECT DECREASED [None]
  - FATIGUE [None]
  - GLUCOSE TOLERANCE IMPAIRED [None]
  - GLYCOSYLATED HAEMOGLOBIN INCREASED [None]
  - HYPOAESTHESIA [None]
  - INSULIN-LIKE GROWTH FACTOR INCREASED [None]
  - OEDEMA [None]
